FAERS Safety Report 17097920 (Version 1)
Quarter: 2019Q4

REPORT INFORMATION
  Report Type: Spontaneous
  Country: US (occurrence: US)
  Receive Date: 20191105
  Receipt Date: 20191105
  Transmission Date: 20200122
  Serious: Yes (Hospitalization)
  Sender: FDA-Public Use
  Company Number: None

PATIENT
  Sex: Female

DRUGS (16)
  1. JARDIANCE [Concomitant]
     Active Substance: EMPAGLIFLOZIN
  2. ATENOLOL. [Concomitant]
     Active Substance: ATENOLOL
  3. TRAMADOL. [Concomitant]
     Active Substance: TRAMADOL
  4. AMBIEN [Concomitant]
     Active Substance: ZOLPIDEM TARTRATE
     Indication: CHRONIC MYELOID LEUKAEMIA
     Route: 048
     Dates: start: 20190828
  5. ROSUVASTATIN. [Concomitant]
     Active Substance: ROSUVASTATIN
  6. DULOXETINE. [Concomitant]
     Active Substance: DULOXETINE
  7. CLONIDINE. [Concomitant]
     Active Substance: CLONIDINE
  8. PROCARDIA XL [Concomitant]
     Active Substance: NIFEDIPINE
  9. LEVOCETIRIZINE [Concomitant]
     Active Substance: LEVOCETIRIZINE
  10. PRAMIPEXOLE. [Concomitant]
     Active Substance: PRAMIPEXOLE
  11. MONTELUKAST [Concomitant]
     Active Substance: MONTELUKAST SODIUM
  12. METFORMIN [Concomitant]
     Active Substance: METFORMIN HYDROCHLORIDE
  13. LOSARTAN/HOT [Concomitant]
  14. HYDROXYUREA. [Concomitant]
     Active Substance: HYDROXYUREA
  15. IMATINIB MES 40MG [Suspect]
     Active Substance: IMATINIB MESYLATE
     Indication: CHRONIC MYELOID LEUKAEMIA
     Route: 048
     Dates: start: 20190828
  16. POT GLUCONATE [Concomitant]

REACTIONS (3)
  - Diarrhoea [None]
  - Nausea [None]
  - Electrolyte imbalance [None]
